FAERS Safety Report 5312571-1 (Version None)
Quarter: 2007Q2

REPORT INFORMATION
  Report Type: 
  Country: None (occurrence: None)
  Receive Date: 20070430
  Receipt Date: 20070102
  Transmission Date: 20071010
  Serious: No
  Sender: FDA-Public Use
  Company Number: 2007UW00065

PATIENT
  Age: 33 Year
  Sex: Female

DRUGS (1)
  1. NEXIUM [Suspect]
     Indication: GASTROOESOPHAGEAL REFLUX DISEASE
     Route: 048
     Dates: start: 20061229, end: 20070101

REACTIONS (3)
  - BACK PAIN [None]
  - CHEST PAIN [None]
  - SENSATION OF FOREIGN BODY [None]
